FAERS Safety Report 5302126-7 (Version None)
Quarter: 2007Q2

REPORT INFORMATION
  Report Type: 
  Country: None (occurrence: None)
  Receive Date: 20070419
  Receipt Date: 20070411
  Transmission Date: 20071010
  Serious: Yes (Life-Threatening, Other)
  Sender: FDA-Public Use
  Company Number: IT-GLAXOSMITHKLINE-B0466831A

PATIENT
  Age: 46 Year
  Sex: Female

DRUGS (3)
  1. AUGMENTIN '125' [Suspect]
     Indication: INFECTION PROPHYLAXIS
     Dosage: 2MG SINGLE DOSE
     Route: 042
     Dates: start: 20070403, end: 20070403
  2. PROPOFOL [Concomitant]
     Indication: ANAESTHESIA
     Route: 042
     Dates: start: 20070403, end: 20070403
  3. NORCURON [Concomitant]
     Indication: ANAESTHESIA
     Route: 042
     Dates: start: 20070403, end: 20070403

REACTIONS (1)
  - BRONCHOSPASM [None]
